FAERS Safety Report 9743208 (Version 1)
Quarter: 2013Q4

REPORT INFORMATION
  Report Type: Spontaneous
  Country: US (occurrence: US)
  Receive Date: 20131210
  Receipt Date: 20131210
  Transmission Date: 20140711
  Serious: Yes (Hospitalization)
  Sender: FDA-Public Use
  Company Number: US-GILEAD-2009-0025054

PATIENT
  Age: 46 Year
  Sex: Female

DRUGS (7)
  1. LETAIRIS [Suspect]
     Indication: PULMONARY ARTERIAL HYPERTENSION
     Route: 048
     Dates: start: 20080923
  2. NITROBID [Concomitant]
  3. METOCLOPRAMIDE [Concomitant]
  4. HYDROXYCHLOROQUINE [Concomitant]
  5. ENALAPRIL [Concomitant]
  6. PREDNISOLONE [Concomitant]
  7. PREVACID [Concomitant]

REACTIONS (1)
  - Red blood cell count decreased [Recovering/Resolving]
